FAERS Safety Report 6371419-7 (Version None)
Quarter: 2009Q3

REPORT INFORMATION
  Report Type: 
  Country: None (occurrence: None)
  Receive Date: 20090923
  Receipt Date: 20071107
  Transmission Date: 20100115
  Serious: Yes (Hospitalization, Other)
  Sender: FDA-Public Use
  Company Number: US-ASTRAZENECA-2007UW12872

PATIENT
  Age: 16169 Day
  Sex: Male
  Weight: 140.6 kg

DRUGS (42)
  1. SEROQUEL [Suspect]
     Indication: DEPRESSION
     Route: 048
     Dates: start: 20010301, end: 20060328
  2. SEROQUEL [Suspect]
     Indication: SCHIZOPHRENIA
     Route: 048
     Dates: start: 20010301, end: 20060328
  3. SEROQUEL [Suspect]
     Dosage: 25-200 MG
     Route: 048
     Dates: start: 20010301
  4. SEROQUEL [Suspect]
     Dosage: 25-200 MG
     Route: 048
     Dates: start: 20010301
  5. ZYPREXA [Concomitant]
     Dates: start: 19960101, end: 20000101
  6. RISPERDAL [Concomitant]
     Dates: start: 19900101, end: 19990101
  7. NORVASAC [Concomitant]
     Route: 048
  8. HYDROCHLOROTHIAZIDE [Concomitant]
     Route: 048
  9. LISINOPRIL [Concomitant]
     Route: 048
  10. AMBIEN [Concomitant]
     Route: 048
  11. VIAGRA [Concomitant]
     Route: 048
  12. DEMEROL [Concomitant]
     Route: 048
  13. NAPROXEN [Concomitant]
     Route: 048
  14. HUMOLOG INSULIN [Concomitant]
     Route: 059
  15. LANTUS U-100 INSULIN [Concomitant]
     Route: 059
  16. HYDROCODONE [Concomitant]
     Dosage: 7.5MG/750MG, EVERY 4 HOUR
     Route: 048
  17. IBUPROFEN [Concomitant]
     Route: 048
  18. TRIAMCINOLONE [Concomitant]
     Route: 061
  19. ALLEGRA [Concomitant]
     Route: 048
  20. NALEX [Concomitant]
     Dosage: 1 TABLESPOON EVERY 4 HOURS
     Route: 048
  21. ZYRTEC [Concomitant]
     Dosage: 1 TABLET EVERY 12 HRS AS REQUIRED
     Route: 048
  22. AVELOX [Concomitant]
     Route: 048
  23. OXYCODONE HCL AND ACETAMINOPHEN [Concomitant]
     Dosage: 7.5/500 MG PER 6 HOURS
     Route: 048
  24. ESTAZOLAM [Concomitant]
     Indication: INSOMNIA
     Route: 048
  25. TEQUIN [Concomitant]
     Route: 048
  26. CHERATUSSIN [Concomitant]
     Dosage: 1 OR 2 TEASPOON EVERY FOUR HOURS
     Route: 048
  27. ROXICET [Concomitant]
     Dosage: 5 MG/325 MG, 1 OR 2 TABS EVERY 6 HOURS
     Route: 048
  28. IMIPRAMINE [Concomitant]
     Route: 048
  29. CLONAZEPAM [Concomitant]
     Route: 048
  30. PERPHENAZINE [Concomitant]
     Route: 048
  31. DOXEPIN HCL [Concomitant]
     Route: 048
  32. DEPAKOTE [Concomitant]
     Route: 048
  33. LUVOX [Concomitant]
     Route: 048
  34. LOTREL [Concomitant]
     Indication: HYPERTENSION
     Dosage: 10/20 MG DAILY
     Route: 048
  35. EFFEXOR XR [Concomitant]
     Route: 048
  36. GEODON [Concomitant]
     Route: 048
  37. ATIVAN [Concomitant]
     Route: 048
  38. NICODERM [Concomitant]
     Route: 062
  39. HALDOL [Concomitant]
     Route: 048
  40. GLUCOTROL [Concomitant]
  41. AMARYL [Concomitant]
     Route: 048
  42. RESTORIL [Concomitant]
     Route: 048

REACTIONS (3)
  - DIABETES MELLITUS [None]
  - DIABETES WITH HYPEROSMOLARITY [None]
  - TYPE 2 DIABETES MELLITUS [None]
